FAERS Safety Report 17096974 (Version 3)
Quarter: 2020Q1

REPORT INFORMATION
  Report Type: Spontaneous
  Country: US (occurrence: US)
  Receive Date: 20191202
  Receipt Date: 20200102
  Transmission Date: 20200409
  Serious: Yes (Hospitalization, Other)
  Sender: FDA-Public Use
  Company Number: US-GLAXOSMITHKLINE-US2019AMR212672

PATIENT
  Age: 89 Year
  Sex: Male

DRUGS (1)
  1. VENTOLIN HFA [Suspect]
     Active Substance: ALBUTEROL SULFATE
     Indication: PRODUCT USED FOR UNKNOWN INDICATION
     Dosage: UNK
     Route: 065
     Dates: start: 2009

REACTIONS (6)
  - Impaired healing [Unknown]
  - Skeletal injury [Unknown]
  - Lower limb fracture [Unknown]
  - Hip fracture [Unknown]
  - Blood potassium abnormal [Unknown]
  - Foot amputation [Unknown]

NARRATIVE: CASE EVENT DATE: 20190621
